FAERS Safety Report 5744382-7 (Version None)
Quarter: 2008Q2

REPORT INFORMATION
  Report Type: 
  Country: None (occurrence: None)
  Receive Date: 20080520
  Receipt Date: 20080508
  Transmission Date: 20081010
  Serious: Yes (Hospitalization, Other)
  Sender: FDA-Public Use
  Company Number: GB-ELI_LILLY_AND_COMPANY-GB200802001284

PATIENT
  Sex: Male
  Weight: 131.1 kg

DRUGS (6)
  1. BYETTA [Suspect]
     Indication: TYPE 2 DIABETES MELLITUS
     Dosage: 5 UG, UNKNOWN
     Route: 058
     Dates: start: 20071201, end: 20080128
  2. CO-FLUAMPICIL [Concomitant]
     Dosage: 250/250, UNKNOWN
     Route: 048
     Dates: start: 20080126, end: 20080128
  3. METFORMIN HCL [Concomitant]
     Indication: DIABETES MELLITUS
     Dosage: 1 G, 2/D
     Route: 048
  4. ATORVASTATIN [Concomitant]
     Indication: BLOOD CHOLESTEROL INCREASED
     Dosage: 40 MG, AT NIGHT
     Route: 048
  5. RAMIPRIL [Concomitant]
     Indication: BLOOD PRESSURE INCREASED
     Dosage: 5 MG, DAILY (1/D)
     Route: 048
  6. GLICLAZIDE [Concomitant]
     Indication: DIABETES MELLITUS
     Dosage: 160 MG, 2/D
     Route: 048

REACTIONS (2)
  - HAEMATURIA [None]
  - VASCULITIC RASH [None]
